FAERS Safety Report 16477258 (Version 1)
Quarter: 2019Q2

REPORT INFORMATION
  Report Type: Spontaneous
  Country: DE (occurrence: DE)
  Receive Date: 20190626
  Receipt Date: 20190626
  Transmission Date: 20190711
  Serious: Yes (Hospitalization, Disabling)
  Sender: FDA-Public Use
  Company Number: DE-009507513-1906DEU008141

PATIENT
  Age: 63 Year
  Sex: Male
  Weight: 84 kg

DRUGS (5)
  1. L-THYROXIN [Concomitant]
     Active Substance: LEVOTHYROXINE SODIUM
     Dosage: DAILY DOSE: 125 ?G MICROGRAM(S) EVERY DAYS
     Dates: start: 201711
  2. METFORMIN [Concomitant]
     Active Substance: METFORMIN HYDROCHLORIDE
     Dosage: DAILY DOSE: 2000 MG MILLGRAM(S) EVERY DAYS
     Dates: start: 200905
  3. SIMVASTATIN. [Suspect]
     Active Substance: SIMVASTATIN
     Dosage: DAILY DOSE: 75 MG MILLGRAM(S) EVERY DAYS
     Dates: start: 20180524, end: 201807
  4. CLOPIDOGREL [Concomitant]
     Active Substance: CLOPIDOGREL BISULFATE
     Dosage: DAILY DOSE: 75 MG MILLGRAM(S) EVERY DAYS
     Dates: start: 20180524, end: 201808
  5. ASPIRIN. [Concomitant]
     Active Substance: ASPIRIN
     Dosage: DAILY DOSE: 100 MG MILLGRAM(S) EVERY DAYS
     Dates: start: 20180524, end: 201810

REACTIONS (4)
  - Reading disorder [Not Recovered/Not Resolved]
  - Amnesia [Not Recovered/Not Resolved]
  - Language disorder [Not Recovered/Not Resolved]
  - Dysgraphia [Not Recovered/Not Resolved]

NARRATIVE: CASE EVENT DATE: 20180525
